FAERS Safety Report 20456461 (Version 3)
Quarter: 2022Q1

REPORT INFORMATION
  Report Type: Report from Study
  Country: CL (occurrence: CL)
  Receive Date: 20220210
  Receipt Date: 20220321
  Transmission Date: 20220423
  Serious: Yes (Other)
  Sender: FDA-Public Use
  Company Number: CL-PFIZER INC-202101595773

PATIENT
  Age: 25 Year
  Sex: Male
  Weight: 108 kg

DRUGS (1)
  1. ABROCITINIB [Suspect]
     Active Substance: ABROCITINIB
     Indication: Dermatitis atopic
     Dosage: 200 MG, 1X/DAY
     Route: 048
     Dates: start: 20191126, end: 20210922

REACTIONS (2)
  - Hidradenitis [Not Recovered/Not Resolved]
  - Condition aggravated [Not Recovered/Not Resolved]

NARRATIVE: CASE EVENT DATE: 20210923
